FAERS Safety Report 16531723 (Version 2)
Quarter: 2019Q4

REPORT INFORMATION
  Report Type: Spontaneous
  Country: DE (occurrence: DE)
  Receive Date: 20190705
  Receipt Date: 20191015
  Transmission Date: 20200122
  Serious: Yes (Other)
  Sender: FDA-Public Use
  Company Number: DE-PFIZER INC-2019281795

PATIENT
  Age: 33 Year
  Sex: Male
  Weight: 47 kg

DRUGS (8)
  1. CIPROFLOXACIN. [Suspect]
     Active Substance: CIPROFLOXACIN
     Indication: ORCHITIS NONINFECTIVE
     Dosage: UNK
  2. CIPROFLOXACIN. [Interacting]
     Active Substance: CIPROFLOXACIN
     Indication: ORCHITIS NONINFECTIVE
  3. ORFIRIL [Interacting]
     Active Substance: VALPROATE SODIUM
     Dosage: 900 MG IN 24 HOURS
     Route: 048
     Dates: start: 2019
  4. ORFIRIL [Interacting]
     Active Substance: VALPROATE SODIUM
     Dosage: 300 MG, 2X/DAY (300 MG - 0 - 300 MG, EVERY 12 H)
     Route: 048
  5. ORFIRIL [Interacting]
     Active Substance: VALPROATE SODIUM
     Dosage: 1050 MG IN 24 HOURS
     Route: 048
     Dates: start: 2019
  6. OSPOLOT [Concomitant]
     Active Substance: SULTHIAME
     Indication: EPILEPSY
     Dosage: UNK
  7. ORFIRIL [Interacting]
     Active Substance: VALPROATE SODIUM
     Indication: EPILEPSY
     Dosage: 1200 MG, 1X/DAY
     Route: 048
     Dates: start: 2001, end: 2010
  8. ORFIRIL [Interacting]
     Active Substance: VALPROATE SODIUM
     Dosage: 900 MG IN 24 HOURS
     Route: 048
     Dates: start: 2010, end: 2014

REACTIONS (6)
  - Therapeutic product effect decreased [Unknown]
  - Drug interaction [Unknown]
  - Osteopenia [Not Recovered/Not Resolved]
  - White blood cell count increased [Not Recovered/Not Resolved]
  - Seizure [Unknown]
  - Bone density decreased [Not Recovered/Not Resolved]
